FAERS Safety Report 9150638 (Version 4)
Quarter: 2016Q4

REPORT INFORMATION
  Report Type: Spontaneous
  Country: US (occurrence: US)
  Receive Date: 20130308
  Receipt Date: 20161221
  Transmission Date: 20170207
  Serious: Yes (Hospitalization)
  Sender: FDA-Public Use
  Company Number: US-009507513-1303USA003521

PATIENT
  Sex: Female
  Weight: 74.47 kg

DRUGS (1)
  1. IMPLANON [Suspect]
     Active Substance: ETONOGESTREL
     Indication: CONTRACEPTION
     Dosage: 1 DF, EVERY 3 YEARS
     Route: 059
     Dates: start: 20091028

REACTIONS (9)
  - Complication associated with device [Not Recovered/Not Resolved]
  - Joint range of motion decreased [Unknown]
  - Menstruation irregular [Unknown]
  - Breast feeding [Unknown]
  - Device difficult to use [Not Recovered/Not Resolved]
  - Foreign body [Unknown]
  - Peripheral swelling [Unknown]
  - Exploratory operation [Unknown]
  - Incorrect drug administration duration [Unknown]

NARRATIVE: CASE EVENT DATE: 2009
